FAERS Safety Report 13952639 (Version 2)
Quarter: 2018Q2

REPORT INFORMATION
  Report Type: Report from Study
  Country: IT (occurrence: IT)
  Receive Date: 20170911
  Receipt Date: 20180426
  Transmission Date: 20180711
  Serious: Yes (Hospitalization, Other)
  Sender: FDA-Public Use
  Company Number: IT-ROCHE-1987439

PATIENT

DRUGS (7)
  1. DACLATASVIR. [Suspect]
     Active Substance: DACLATASVIR
     Indication: HEPATITIS C
     Route: 065
  2. SIMEPREVIR [Suspect]
     Active Substance: SIMEPREVIR
     Indication: HEPATITIS C
     Route: 065
  3. RIBAVIRIN. [Suspect]
     Active Substance: RIBAVIRIN
     Indication: HEPATITIS C
     Route: 065
  4. SOFOSBUVIR [Suspect]
     Active Substance: SOFOSBUVIR
     Indication: HEPATITIS C
     Route: 065
  5. LEDIPASVIR [Suspect]
     Active Substance: LEDIPASVIR
     Indication: HEPATITIS C
     Route: 065
  6. OMBITASVIR/PARITAPREVIR/RITONAVIR [Suspect]
     Active Substance: OMBITASVIR\PARITAPREVIR\RITONAVIR
     Indication: HEPATITIS C
     Route: 065
  7. DASABUVIR [Suspect]
     Active Substance: DASABUVIR
     Indication: HEPATITIS C
     Route: 065

REACTIONS (12)
  - Gastrointestinal disorder [Unknown]
  - Dizziness [Unknown]
  - Photosensitivity reaction [Unknown]
  - Gastrointestinal haemorrhage [Unknown]
  - Affective disorder [Unknown]
  - Fatigue [Unknown]
  - Hepatic encephalopathy [Unknown]
  - Headache [Unknown]
  - Anaemia [Unknown]
  - Rash [Unknown]
  - Insomnia [Unknown]
  - Pruritus [Unknown]
